FAERS Safety Report 4554906-3 (Version None)
Quarter: 2004Q4

REPORT INFORMATION
  Report Type: 
  Country: None (occurrence: None)
  Receive Date: 20041222
  Receipt Date: 20041013
  Transmission Date: 20050328
  Serious: No
  Sender: FDA-Public Use
  Company Number: 209631

PATIENT
  Age: 41 Year
  Sex: Male

DRUGS (8)
  1. AVASTIN [Suspect]
     Indication: COLON CANCER
     Dosage: 500 MG, Q2W, INTRAVENOUS
     Route: 042
     Dates: start: 20040830
  2. NEURONTIN [Concomitant]
  3. FLUOROURACIL [Concomitant]
  4. ZOFRAN [Concomitant]
  5. DECADRON [Concomitant]
  6. LEUCOVORIN CALCIUM [Concomitant]
  7. OXALIPLATIN (OXALIPLATIN) [Concomitant]
  8. MOTRIN [Concomitant]

REACTIONS (1)
  - EPISTAXIS [None]
